FAERS Safety Report 13437113 (Version 1)
Quarter: 2017Q2

REPORT INFORMATION
  Report Type: Spontaneous
  Country: US (occurrence: US)
  Receive Date: 20170412
  Receipt Date: 20170412
  Transmission Date: 20170830
  Serious: No
  Sender: FDA-Public Use
  Company Number: US-SA-2016SA093214

PATIENT
  Age: 45 Year
  Sex: Male

DRUGS (3)
  1. ALLEGRA ALLERGY [Suspect]
     Active Substance: FEXOFENADINE HYDROCHLORIDE
     Indication: HYPERSENSITIVITY
     Dosage: STARTED TAKING 1 TABLET IN THE MORNING SINCE AROUND THE END OF MARCH 2016.
     Route: 065
     Dates: start: 20160510, end: 20160510
  2. ALLEGRA ALLERGY [Suspect]
     Active Substance: FEXOFENADINE HYDROCHLORIDE
     Indication: HYPERSENSITIVITY
     Dosage: STARTED TAKING 1 TABLET IN THE MORNING SINCE AROUND THE END OF MARCH 2016.
     Route: 065
     Dates: start: 201603
  3. ALLEGRA ALLERGY [Suspect]
     Active Substance: FEXOFENADINE HYDROCHLORIDE
     Indication: HYPERSENSITIVITY
     Dosage: STARTED TAKING 1 TABLET IN THE MORNING SINCE AROUND THE END OF MARCH 2016.
     Route: 065
     Dates: start: 20160511

REACTIONS (1)
  - Extra dose administered [Unknown]
